FAERS Safety Report 4322984-2 (Version None)
Quarter: 2004Q1

REPORT INFORMATION
  Report Type: 
  Country: None (occurrence: None)
  Receive Date: 20040322
  Receipt Date: 20040315
  Transmission Date: 20041129
  Serious: Yes (Hospitalization, Disabling, Other)
  Sender: FDA-Public Use
  Company Number: 200320257BWH

PATIENT
  Age: 85 Year
  Sex: Male
  Weight: 78.0187 kg

DRUGS (2)
  1. CIPRO [Suspect]
     Indication: PROSTATE INFECTION
     Dosage: 250 MG BID ORAL
     Route: 048
     Dates: start: 20020702, end: 20020729
  2. ACETAMINOPHEN AND HYDROCODONE BITARTRATE [Concomitant]

REACTIONS (19)
  - BODY TEMPERATURE INCREASED [None]
  - BURNS THIRD DEGREE [None]
  - CELLULITIS ORBITAL [None]
  - CHILLS [None]
  - CONFUSIONAL STATE [None]
  - DEPRESSION [None]
  - DRUG INEFFECTIVE [None]
  - EYE SWELLING [None]
  - HALLUCINATION [None]
  - HERPES ZOSTER [None]
  - LACRIMATION INCREASED [None]
  - NEUROPATHIC PAIN [None]
  - PHOTOSENSITIVITY REACTION [None]
  - SEASONAL ALLERGY [None]
  - SKIN DISCOLOURATION [None]
  - SUNBURN [None]
  - THERMAL BURNS OF EYE [None]
  - URINARY RETENTION [None]
  - URINARY TRACT INFECTION [None]
